FAERS Safety Report 23067613 (Version 1)
Quarter: 2023Q4

REPORT INFORMATION
  Report Type: Spontaneous
  Country: JP (occurrence: JP)
  Receive Date: 20231016
  Receipt Date: 20231016
  Transmission Date: 20240109
  Serious: Yes (Other)
  Sender: FDA-Public Use
  Company Number: JP-CHUGAI-2023036074

PATIENT
  Age: 7 Decade

DRUGS (1)
  1. POLIVY [Suspect]
     Active Substance: POLATUZUMAB VEDOTIN-PIIQ
     Indication: Diffuse large B-cell lymphoma
     Dosage: UNK
     Route: 065

REACTIONS (2)
  - Haemophagocytic lymphohistiocytosis [Recovering/Resolving]
  - Cytopenia [Recovered/Resolved]
